FAERS Safety Report 7387748-4 (Version None)
Quarter: 2011Q1

REPORT INFORMATION
  Report Type: 
  Country: None (occurrence: None)
  Receive Date: 20110331
  Receipt Date: 20110317
  Transmission Date: 20110831
  Serious: Yes (Other)
  Sender: FDA-Public Use
  Company Number: PHHY2011US22083

PATIENT
  Sex: Female

DRUGS (1)
  1. RECLAST [Suspect]
     Dosage: UNK
     Route: 042

REACTIONS (5)
  - HIP FRACTURE [None]
  - CARDIAC DISORDER [None]
  - LIMB DISCOMFORT [None]
  - CATARACT [None]
  - OESOPHAGEAL DISORDER [None]
